FAERS Safety Report 8211175-0 (Version None)
Quarter: 2012Q1

REPORT INFORMATION
  Report Type: 
  Country: None (occurrence: None)
  Receive Date: 20120315
  Receipt Date: 20120309
  Transmission Date: 20120608
  Serious: Yes (Hospitalization, Other)
  Sender: FDA-Public Use
  Company Number: MX-SANOFI-AVENTIS-2012SA016397

PATIENT
  Age: 48 Year
  Sex: Male

DRUGS (1)
  1. LANTUS [Suspect]
     Indication: DIABETES MELLITUS
     Route: 058

REACTIONS (3)
  - AMNESIA [None]
  - KIDNEY INFECTION [None]
  - SPEECH DISORDER [None]
